FAERS Safety Report 8608623-0 (Version None)
Quarter: 2012Q3

REPORT INFORMATION
  Report Type: 
  Country: None (occurrence: None)
  Receive Date: 20120809
  Receipt Date: 20120809
  Transmission Date: 20120928
  Serious: No
  Sender: FDA-Public Use
  Company Number: None

PATIENT
  Age: 54 Year
  Sex: Female
  Weight: 65.318 kg

DRUGS (2)
  1. NEUPOGEN [Suspect]
  2. NEULASTA [Suspect]

REACTIONS (5)
  - MIGRAINE [None]
  - INJECTION SITE RASH [None]
  - CHILLS [None]
  - MYALGIA [None]
  - RASH [None]
